FAERS Safety Report 11703388 (Version 2)
Quarter: 2015Q4

REPORT INFORMATION
  Report Type: Report from Study
  Country: US (occurrence: US)
  Receive Date: 20151105
  Receipt Date: 20151112
  Transmission Date: 20160304
  Serious: No
  Sender: FDA-Public Use
  Company Number: GXBR2015US002259

PATIENT
  Sex: Female

DRUGS (1)
  1. OMNITROPE [Suspect]
     Active Substance: SOMATROPIN
     Indication: BODY HEIGHT BELOW NORMAL
     Dosage: 1 MG, QD
     Route: 065
     Dates: start: 201505

REACTIONS (2)
  - Drug administered in wrong device [Not Recovered/Not Resolved]
  - Incorrect dose administered [Not Recovered/Not Resolved]
